FAERS Safety Report 9873968 (Version 2)
Quarter: 2014Q1

REPORT INFORMATION
  Report Type: Other
  Country: US (occurrence: US)
  Receive Date: 20140206
  Receipt Date: 20140206
  Transmission Date: 20141002
  Serious: No
  Sender: FDA-Public Use
  Company Number: US-ACORDA-ACO_34873_2013

PATIENT
  Age: 78 Year
  Sex: Female

DRUGS (5)
  1. AMPYRA [Suspect]
     Indication: GAIT DISTURBANCE
     Dosage: 10 MG, BID
     Route: 048
     Dates: start: 20121023, end: 201302
  2. AMPYRA [Suspect]
     Dosage: 10 MG BID
     Dates: start: 2013, end: 2013
  3. AMPYRA [Suspect]
     Dosage: 10 MG, BID
     Dates: start: 2013, end: 201308
  4. AMPYRA [Suspect]
     Dosage: 10 MG, BID
     Route: 048
     Dates: start: 2013
  5. METHOTREXATE SODIUM [Concomitant]
     Indication: PRODUCT USED FOR UNKNOWN INDICATION
     Dosage: UNK

REACTIONS (10)
  - Fatigue [Recovered/Resolved]
  - Malaise [Recovered/Resolved]
  - Diarrhoea [Recovered/Resolved]
  - Pain in extremity [Recovered/Resolved]
  - Muscular weakness [Recovered/Resolved]
  - Muscle fatigue [Recovered/Resolved]
  - Therapy cessation [Unknown]
  - Multiple sclerosis [Unknown]
  - Adverse drug reaction [Recovered/Resolved]
  - Multiple sclerosis relapse [Recovered/Resolved]
